FAERS Safety Report 8033109-4 (Version None)
Quarter: 2012Q1

REPORT INFORMATION
  Report Type: 
  Country: None (occurrence: None)
  Receive Date: 20120110
  Receipt Date: 20120110
  Transmission Date: 20120608
  Serious: Yes (Death, Other)
  Sender: FDA-Public Use
  Company Number: None

PATIENT
  Sex: Male
  Weight: 90.718 kg

DRUGS (1)
  1. PLAVIX [Suspect]
     Indication: JOINT STIFFNESS
     Dates: start: 20030313, end: 20111119

REACTIONS (3)
  - CONTUSION [None]
  - INCREASED TENDENCY TO BRUISE [None]
  - LIMB CRUSHING INJURY [None]
